FAERS Safety Report 18194780 (Version 1)
Quarter: 2020Q3

REPORT INFORMATION
  Report Type: Spontaneous
  Country: IT (occurrence: IT)
  Receive Date: 20200825
  Receipt Date: 20200825
  Transmission Date: 20201103
  Serious: Yes (Other)
  Sender: FDA-Public Use
  Company Number: IT-PFIZER INC-2020328075

PATIENT
  Sex: Male

DRUGS (1)
  1. PANTORC [Suspect]
     Active Substance: PANTOPRAZOLE SODIUM
     Indication: HIATUS HERNIA
     Dosage: UNK
     Route: 065

REACTIONS (4)
  - Loss of consciousness [Recovered/Resolved with Sequelae]
  - Condition aggravated [Recovered/Resolved with Sequelae]
  - Tachycardia [Recovered/Resolved with Sequelae]
  - Nausea [Recovered/Resolved with Sequelae]
